FAERS Safety Report 21031878 (Version 1)
Quarter: 2022Q3

REPORT INFORMATION
  Report Type: Spontaneous
  Country: US (occurrence: None)
  Receive Date: 20220701
  Receipt Date: 20220701
  Transmission Date: 20221027
  Serious: No
  Sender: FDA-Public Use
  Company Number: US-ROCHE-3010966

PATIENT
  Sex: Female

DRUGS (1)
  1. ACTEMRA [Suspect]
     Active Substance: TOCILIZUMAB
     Indication: Rheumatoid arthritis
     Dosage: BROCHURE STATES ACTEMRA INFUSION SHOULD BE GIVEN OVER 1 HOUR
     Route: 041

REACTIONS (3)
  - Nausea [Unknown]
  - Incorrect product administration duration [Unknown]
  - Therapeutic response decreased [Unknown]
